FAERS Safety Report 13331318 (Version 1)
Quarter: 2017Q1

REPORT INFORMATION
  Report Type: Spontaneous
  Country: US (occurrence: US)
  Receive Date: 20170313
  Receipt Date: 20170313
  Transmission Date: 20170428
  Serious: Yes (Other)
  Sender: FDA-Public Use
  Company Number: None

PATIENT
  Sex: Female

DRUGS (1)
  1. NALOXONE [Suspect]
     Active Substance: NALOXONE

REACTIONS (2)
  - Drug intolerance [None]
  - Migraine [None]
